FAERS Safety Report 9242364 (Version 1)
Quarter: 2013Q2

REPORT INFORMATION
  Report Type: Spontaneous
  Country: US (occurrence: US)
  Receive Date: 20130419
  Receipt Date: 20130419
  Transmission Date: 20140414
  Serious: No
  Sender: FDA-Public Use
  Company Number: US-009507513-1304USA007794

PATIENT
  Age: 63 Year
  Sex: Male

DRUGS (4)
  1. ASMANEX TWISTHALER [Suspect]
     Indication: COUGH
     Dosage: TWO PUFFS, BID
     Route: 055
     Dates: start: 201304
  2. ASMANEX TWISTHALER [Suspect]
     Indication: RESPIRATORY TRACT CONGESTION
  3. ASMANEX TWISTHALER [Suspect]
     Indication: NASOPHARYNGITIS
  4. ANTIMICROBIAL (UNSPECIFIED) [Concomitant]

REACTIONS (6)
  - Nasopharyngitis [Recovering/Resolving]
  - Respiratory tract congestion [Recovering/Resolving]
  - Cough [Recovering/Resolving]
  - Drug effect delayed [Unknown]
  - Product quality issue [Unknown]
  - Drug dose omission [Unknown]
